FAERS Safety Report 6146771-8 (Version None)
Quarter: 2009Q2

REPORT INFORMATION
  Report Type: 
  Country: None (occurrence: None)
  Receive Date: 20090403
  Receipt Date: 20090403
  Transmission Date: 20091009
  Serious: Yes (Hospitalization)
  Sender: FDA-Public Use
  Company Number: None

PATIENT
  Age: 51 Year
  Sex: Male
  Weight: 83.95 kg

DRUGS (11)
  1. BACLOFEN [Suspect]
     Indication: MUSCLE SPASMS
     Dates: start: 20090307, end: 20090311
  2. AMPHOTERICIN B [Concomitant]
  3. HEPARIN [Concomitant]
  4. FAMOTIDINE [Concomitant]
  5. ASPIRIN [Concomitant]
  6. MULTIVATIMIN [Concomitant]
  7. GABAPENTIN [Concomitant]
  8. CLONAZEPAM [Concomitant]
  9. LACTINEX [Concomitant]
  10. OXYCODONE HCL [Concomitant]
  11. METOPROLOL SUCCINATE [Concomitant]

REACTIONS (5)
  - ABNORMAL BEHAVIOUR [None]
  - APHASIA [None]
  - CONFUSIONAL STATE [None]
  - HALLUCINATION [None]
  - REPETITIVE SPEECH [None]
